FAERS Safety Report 21336685 (Version 1)
Quarter: 2022Q3

REPORT INFORMATION
  Report Type: Spontaneous
  Country: TR (occurrence: TR)
  Receive Date: 20220915
  Receipt Date: 20220915
  Transmission Date: 20221027
  Serious: Yes (Death)
  Sender: FDA-Public Use
  Company Number: TR-AMNEAL PHARMACEUTICALS-2022-AMRX-02485

PATIENT

DRUGS (1)
  1. FLECAINIDE ACETATE [Suspect]
     Active Substance: FLECAINIDE ACETATE
     Indication: Product used for unknown indication
     Dosage: UNK
     Route: 065

REACTIONS (2)
  - Poisoning [Fatal]
  - Overdose [Fatal]
